FAERS Safety Report 25190052 (Version 2)
Quarter: 2025Q2

REPORT INFORMATION
  Report Type: Report from Study
  Country: AE (occurrence: AE)
  Receive Date: 20250411
  Receipt Date: 20250625
  Transmission Date: 20250716
  Serious: Yes (Hospitalization, Other)
  Sender: JOHNSON AND JOHNSON
  Company Number: AE-JNJFOC-20250407334

PATIENT
  Age: 58 Year
  Sex: Female

DRUGS (1)
  1. SIMPONI [Suspect]
     Active Substance: GOLIMUMAB
     Indication: Rheumatoid arthritis
     Route: 058

REACTIONS (5)
  - Fall [Unknown]
  - Arthritis infective [Unknown]
  - Rheumatoid arthritis [Unknown]
  - Contusion [Unknown]
  - Sciatica [Unknown]

NARRATIVE: CASE EVENT DATE: 20250101
